FAERS Safety Report 9576445 (Version 1)
Quarter: 2013Q4

REPORT INFORMATION
  Report Type: Spontaneous
  Country: US (occurrence: US)
  Receive Date: 20131001
  Receipt Date: 20131001
  Transmission Date: 20140711
  Serious: No
  Sender: FDA-Public Use
  Company Number: US-AMGEN-USASP2013003222

PATIENT
  Age: 72 Year
  Sex: Female

DRUGS (2)
  1. ENBREL [Suspect]
     Indication: PSORIATIC ARTHROPATHY
     Dosage: 50 MG, QWK
     Dates: start: 20121022
  2. METHOTREXATE [Concomitant]
     Dosage: 7.5 MG, QWK  (BEGAN  7 YEARS AGO)
     Route: 048

REACTIONS (1)
  - Sinusitis [Recovered/Resolved]
